FAERS Safety Report 21520273 (Version 2)
Quarter: 2024Q2

REPORT INFORMATION
  Report Type: Spontaneous
  Country: FR (occurrence: FR)
  Receive Date: 20221028
  Receipt Date: 20240613
  Transmission Date: 20240716
  Serious: Yes (Death, Other)
  Sender: FDA-Public Use
  Company Number: FR-SUN PHARMACEUTICAL INDUSTRIES LTD-2022RR-360073

PATIENT
  Age: 40 Year
  Sex: Female

DRUGS (7)
  1. PREGABALIN [Suspect]
     Active Substance: PREGABALIN
     Indication: Product used for unknown indication
     Dosage: UNK
     Route: 065
  2. TRAMADOL [Suspect]
     Active Substance: TRAMADOL\TRAMADOL HYDROCHLORIDE
     Indication: Product used for unknown indication
     Dosage: UNK
     Route: 065
  3. DIAZEPAM [Suspect]
     Active Substance: DIAZEPAM
     Indication: Product used for unknown indication
     Dosage: UNK
     Route: 065
  4. OXAZEPAM [Suspect]
     Active Substance: OXAZEPAM
     Indication: Product used for unknown indication
     Dosage: UNK
     Route: 065
  5. NORDAZEPAM [Suspect]
     Active Substance: NORDAZEPAM
     Indication: Product used for unknown indication
     Dosage: UNK
     Route: 065
  6. OXOMEMAZINE [Suspect]
     Active Substance: OXOMEMAZINE
     Indication: Product used for unknown indication
     Dosage: UNK
     Route: 065
  7. PHOLCODINE [Suspect]
     Active Substance: PHOLCODINE
     Indication: Product used for unknown indication
     Dosage: UNK
     Route: 065

REACTIONS (3)
  - Death [Fatal]
  - Product administration error [Unknown]
  - Toxicity to various agents [Unknown]
